FAERS Safety Report 13910311 (Version 1)
Quarter: 2017Q3

REPORT INFORMATION
  Report Type: Spontaneous
  Country: AU (occurrence: AU)
  Receive Date: 20170828
  Receipt Date: 20170828
  Transmission Date: 20171127
  Serious: Yes (Hospitalization, Other)
  Sender: FDA-Public Use
  Company Number: AU-APOTEX-2017AP017067

PATIENT
  Age: 78 Year

DRUGS (2)
  1. PREDNISOLONE. [Concomitant]
     Active Substance: PREDNISOLONE
     Indication: RHEUMATOID ARTHRITIS
     Route: 065
  2. APO-CLOPIDOGREL [Suspect]
     Active Substance: CLOPIDOGREL BISULFATE
     Indication: TRANSIENT ISCHAEMIC ATTACK
     Route: 065

REACTIONS (6)
  - Confusional state [Recovered/Resolved]
  - Atrial fibrillation [Unknown]
  - Somnolence [Recovered/Resolved]
  - Fall [Unknown]
  - Transient ischaemic attack [Unknown]
  - Muscular weakness [Recovered/Resolved]
